FAERS Safety Report 5368288-0 (Version None)
Quarter: 2007Q2

REPORT INFORMATION
  Report Type: 
  Country: None (occurrence: None)
  Receive Date: 20070619
  Receipt Date: 20070604
  Transmission Date: 20071010
  Serious: Yes (Hospitalization, Other)
  Sender: FDA-Public Use
  Company Number: 100#08#2007-02024

PATIENT
  Age: 53 Year
  Sex: Male

DRUGS (3)
  1. METHYLPREDNISOLONE [Suspect]
     Indication: ENDOCRINE OPHTHALMOPATHY
     Dosage: 1G DAILY IN A CYCLE, WITH ONE CYCLE EVERY 2 WEEKS AND EACH CYCLE COMPRISING TWO INFUSSIONS ON ALTERA
     Route: 042
  2. IODINE 131 (IODINE (131 I) [Concomitant]
  3. SALINE SOLUTION (SODIUM CHLORIDE) [Concomitant]

REACTIONS (13)
  - ACUTE PULMONARY OEDEMA [None]
  - ANXIETY [None]
  - BLOOD PRESSURE INCREASED [None]
  - CARDIAC FAILURE ACUTE [None]
  - CHILLS [None]
  - CYANOSIS [None]
  - EJECTION FRACTION DECREASED [None]
  - FLUID OVERLOAD [None]
  - HYPERHIDROSIS [None]
  - LEFT VENTRICULAR FAILURE [None]
  - RESPIRATORY DISTRESS [None]
  - RESPIRATORY RATE INCREASED [None]
  - TACHYCARDIA [None]
